FAERS Safety Report 8793195 (Version 2)
Quarter: 2014Q1

REPORT INFORMATION
  Report Type: Spontaneous
  Country: US (occurrence: US)
  Receive Date: 20120917
  Receipt Date: 20140205
  Transmission Date: 20141002
  Serious: No
  Sender: FDA-Public Use
  Company Number: US-PFIZER INC-2012224189

PATIENT
  Age: 87 Year
  Sex: Female
  Weight: 72.56 kg

DRUGS (5)
  1. LIPITOR [Suspect]
     Indication: BLOOD CHOLESTEROL INCREASED
     Dosage: 10 MG, DAILY AT NIGHT
  2. NEURONTIN [Suspect]
     Indication: NEUROPATHY PERIPHERAL
     Dosage: 600 MG IN MORNING, 600 MG AT LUNCH AND TWO PILLS OF 600 MG AT NIGHT
  3. XALATAN [Suspect]
     Indication: EYE OPERATION
     Dosage: UNK (1 DROP IN BOTH EYES AT BED TIME)
     Route: 047
     Dates: start: 2012
  4. HUMALOG [Concomitant]
     Indication: DIABETES MELLITUS
     Dosage: 25 IU, 3X/DAY
  5. LEVEMIR [Concomitant]
     Indication: DIABETES MELLITUS
     Dosage: 32 IU, DAILY AT BEDTIME

REACTIONS (2)
  - Hearing impaired [Not Recovered/Not Resolved]
  - Labyrinthitis [Unknown]
